FAERS Safety Report 8447601-1 (Version None)
Quarter: 2012Q2

REPORT INFORMATION
  Report Type: 
  Country: None (occurrence: None)
  Receive Date: 20120613
  Receipt Date: 20120613
  Transmission Date: 20120825
  Serious: Yes (Hospitalization)
  Sender: FDA-Public Use
  Company Number: None

PATIENT
  Sex: Male
  Weight: 69.8 kg

DRUGS (2)
  1. CARBOPLATIN [Suspect]
     Dosage: 210 MG
     Dates: end: 20120523
  2. TAXOL [Suspect]
     Dosage: 88 MG
     Dates: end: 20120523

REACTIONS (2)
  - NEUTROPHIL COUNT DECREASED [None]
  - PYREXIA [None]
